FAERS Safety Report 7077468-8 (Version None)
Quarter: 2010Q4

REPORT INFORMATION
  Report Type: 
  Country: None (occurrence: None)
  Receive Date: 20101101
  Receipt Date: 20101019
  Transmission Date: 20110411
  Serious: Yes (Other)
  Sender: FDA-Public Use
  Company Number: US-ELI_LILLY_AND_COMPANY-US201010004926

PATIENT
  Age: 70 Year
  Sex: Male

DRUGS (3)
  1. EFFIENT [Suspect]
     Indication: PERCUTANEOUS CORONARY INTERVENTION
     Dosage: UNK, UNKNOWN
     Route: 065
     Dates: start: 20100901
  2. HEPARIN [Concomitant]
  3. ASPIRIN [Concomitant]

REACTIONS (1)
  - PERICARDIAL EFFUSION [None]
